FAERS Safety Report 4505162-3 (Version None)
Quarter: 2004Q4

REPORT INFORMATION
  Report Type: 
  Country: None (occurrence: None)
  Receive Date: 20041116
  Receipt Date: 20041102
  Transmission Date: 20050328
  Serious: Yes (Hospitalization)
  Sender: FDA-Public Use
  Company Number: 140546USA

PATIENT
  Age: 79 Year
  Sex: Male
  Weight: 74.8435 kg

DRUGS (11)
  1. ADRUCIL [Suspect]
     Indication: COLON CANCER
     Dates: start: 20041006
  2. AVASTIN [Suspect]
     Indication: COLON CANCER
     Dates: start: 20041006
  3. CAMPTOSAR [Suspect]
     Indication: COLON CANCER
     Dates: start: 20041006
  4. LEUCOVORIN [Suspect]
     Indication: COLON CANCER
     Dates: start: 20041006
  5. CELEBREX [Suspect]
     Indication: COLON CANCER
     Dosage: 400 MILLIGRAM BID ORAL
     Route: 048
     Dates: start: 20041006
  6. CALTRATE [Concomitant]
  7. COUMADIN [Concomitant]
  8. ATIVAN [Concomitant]
  9. COMPAZINE [Concomitant]
  10. OCCUVITE [Concomitant]
  11. IMODIUM [Concomitant]

REACTIONS (7)
  - BONE MARROW DEPRESSION [None]
  - CENTRAL LINE INFECTION [None]
  - DEEP VEIN THROMBOSIS [None]
  - DIPHTHERIA [None]
  - FEBRILE NEUTROPENIA [None]
  - INTESTINAL OBSTRUCTION [None]
  - INTESTINAL PERFORATION [None]
